FAERS Safety Report 5673708-8 (Version None)
Quarter: 2008Q1

REPORT INFORMATION
  Report Type: 
  Country: None (occurrence: None)
  Receive Date: 20080319
  Receipt Date: 20080308
  Transmission Date: 20080703
  Serious: Yes (Other)
  Sender: FDA-Public Use
  Company Number: US-PFIZER INC-2008006664

PATIENT
  Sex: Female

DRUGS (7)
  1. LYRICA [Suspect]
     Indication: NEUROPATHY PERIPHERAL
     Route: 048
  2. LYRICA [Suspect]
     Indication: CENTRAL NERVOUS SYSTEM LYMPHOMA
  3. TEMODAR [Concomitant]
  4. ALL OTHER THERAPEUTIC PRODUCTS [Concomitant]
  5. METHADON HCL TAB [Concomitant]
  6. RITALIN [Concomitant]
  7. ALL OTHER THERAPEUTIC PRODUCTS [Concomitant]

REACTIONS (9)
  - ERYTHEMA [None]
  - INFECTED SKIN ULCER [None]
  - PRURITUS [None]
  - RASH PAPULAR [None]
  - SCAB [None]
  - SKIN LESION [None]
  - SKIN NODULE [None]
  - STAPHYLOCOCCAL SKIN INFECTION [None]
  - VASCULITIS [None]
